FAERS Safety Report 21337547 (Version 1)
Quarter: 2022Q3

REPORT INFORMATION
  Report Type: Spontaneous
  Country: US (occurrence: US)
  Receive Date: 20220915
  Receipt Date: 20220915
  Transmission Date: 20221026
  Serious: No
  Sender: FDA-Public Use
  Company Number: US-GILEAD-2022-0597615

PATIENT
  Sex: Female

DRUGS (3)
  1. SOFOSBUVIR\VELPATASVIR [Suspect]
     Active Substance: SOFOSBUVIR\VELPATASVIR
     Indication: Chronic hepatitis C
     Dosage: 1 DOSAGE FORM, QD
     Route: 048
  2. RETINOL [Concomitant]
     Active Substance: RETINOL
  3. BUPRENORPHINE [Concomitant]
     Active Substance: BUPRENORPHINE

REACTIONS (1)
  - Maternal exposure during pregnancy [Not Recovered/Not Resolved]
